FAERS Safety Report 5010624-9 (Version None)
Quarter: 2006Q2

REPORT INFORMATION
  Report Type: 
  Country: None (occurrence: None)
  Receive Date: 20060525
  Receipt Date: 20060518
  Transmission Date: 20061013
  Serious: Yes (Hospitalization)
  Sender: FDA-Public Use
  Company Number: FR-BRISTOL-MYERS SQUIBB COMPANY-13383161

PATIENT
  Age: 73 Year
  Sex: Female

DRUGS (13)
  1. COUMADIN [Suspect]
     Dosage: DURATION: LONG TIME, STOPPED 05-DEC-2005 DUE TO EVENTS AND RE-STARTED IN MAR-2006
     Route: 048
     Dates: end: 20051205
  2. VENTOLIN [Concomitant]
     Route: 055
  3. ATROVENT [Concomitant]
  4. LASILIX [Concomitant]
  5. ALDACTONE [Concomitant]
  6. SEROPRAM [Concomitant]
  7. TRIATEC [Concomitant]
  8. MOPRAL [Concomitant]
  9. FLECAINIDE ACETATE [Concomitant]
  10. NITRODERM [Concomitant]
  11. ACTRAPID [Concomitant]
  12. SOLU-MEDROL [Concomitant]
  13. MOVICOL [Concomitant]

REACTIONS (4)
  - ANAEMIA [None]
  - HAEMATOMA [None]
  - RENAL FAILURE [None]
  - SHOCK [None]
